FAERS Safety Report 20470238 (Version 2)
Quarter: 2022Q2

REPORT INFORMATION
  Report Type: Spontaneous
  Country: DE (occurrence: DE)
  Receive Date: 20220214
  Receipt Date: 20220414
  Transmission Date: 20220720
  Serious: Yes (Life-Threatening, Hospitalization, Other)
  Sender: FDA-Public Use
  Company Number: DE-EMA-DD-20220203-pawar_p-105400

PATIENT
  Age: 75 Year
  Sex: Male

DRUGS (3)
  1. SODIUM CHLORIDE [Suspect]
     Active Substance: SODIUM CHLORIDE
     Indication: Back pain
     Dosage: 20 ML NACL 0.9%
     Route: 037
  2. ROPIVACAINE [Suspect]
     Active Substance: ROPIVACAINE
     Indication: Back pain
     Dosage: 4 ML ROPIVACAINE 10 MG/ML
     Route: 037
  3. TRIAMCINOLONE [Suspect]
     Active Substance: TRIAMCINOLONE
     Indication: Back pain
     Route: 037

REACTIONS (5)
  - Somnolence [Recovered/Resolved]
  - Circulatory collapse [Recovered/Resolved]
  - Anaesthetic complication [Recovered/Resolved]
  - Muscular weakness [Recovered/Resolved]
  - Incorrect route of product administration [Unknown]
